FAERS Safety Report 13713597 (Version 1)
Quarter: 2017Q3

REPORT INFORMATION
  Report Type: Spontaneous
  Country: PL (occurrence: PL)
  Receive Date: 20170704
  Receipt Date: 20170704
  Transmission Date: 20171127
  Serious: Yes (Hospitalization)
  Sender: FDA-Public Use
  Company Number: PL-BAXTER-2017BAX025336

PATIENT
  Age: 79 Year
  Sex: Male
  Weight: 84 kg

DRUGS (1)
  1. THEOPHYLLINUM BAXTER [Suspect]
     Active Substance: THEOPHYLLINE ANHYDROUS
     Indication: PRODUCT USED FOR UNKNOWN INDICATION
     Dosage: THEOPHYLINE 300MG/250ML
     Route: 042
     Dates: start: 20150609, end: 20150609

REACTIONS (3)
  - Nausea [Recovered/Resolved]
  - Tremor [Recovered/Resolved]
  - Malaise [Recovered/Resolved]

NARRATIVE: CASE EVENT DATE: 20150609
